FAERS Safety Report 16947034 (Version 3)
Quarter: 2020Q1

REPORT INFORMATION
  Report Type: Spontaneous
  Country: US (occurrence: US)
  Receive Date: 20191022
  Receipt Date: 20200127
  Transmission Date: 20200409
  Serious: No
  Sender: FDA-Public Use
  Company Number: US-PFIZER INC-2019453020

PATIENT
  Age: 94 Year
  Sex: Male
  Weight: 61.22 kg

DRUGS (2)
  1. EUCRISA [Suspect]
     Active Substance: CRISABOROLE
     Indication: DERMATITIS ATOPIC
     Dosage: UNK, 1X/DAY APPLY TO AFFECTED AREA(S) ONCE DAILY
     Route: 061
     Dates: start: 2019
  2. EUCRISA [Suspect]
     Active Substance: CRISABOROLE
     Indication: PRURITUS

REACTIONS (3)
  - Drug ineffective [Unknown]
  - Intentional product misuse [Unknown]
  - Off label use [Unknown]

NARRATIVE: CASE EVENT DATE: 2019
